FAERS Safety Report 11226388 (Version 1)
Quarter: 2015Q2

REPORT INFORMATION
  Report Type: Spontaneous
  Country: JP (occurrence: JP)
  Receive Date: 20150629
  Receipt Date: 20150629
  Transmission Date: 20150821
  Serious: Yes (Hospitalization, Other)
  Sender: FDA-Public Use
  Company Number: PHHY2015JP076087

PATIENT
  Age: 45 Year
  Sex: Female

DRUGS (2)
  1. OLANZAPINE. [Suspect]
     Active Substance: OLANZAPINE
     Indication: SCHIZOPHRENIA
     Dosage: 20 MG, QD
     Route: 065
  2. OLANZAPINE. [Suspect]
     Active Substance: OLANZAPINE
     Dosage: 30 MG, QD
     Route: 065

REACTIONS (9)
  - Dizziness [Recovered/Resolved]
  - Asthenia [Recovered/Resolved]
  - Dumping syndrome [Recovered/Resolved]
  - Condition aggravated [Recovered/Resolved]
  - Sweat gland disorder [Recovered/Resolved]
  - Hyperchlorhydria [Recovered/Resolved]
  - Drug ineffective [Unknown]
  - Hyperinsulinaemia [Recovered/Resolved]
  - Hypoglycaemia [Recovering/Resolving]
